FAERS Safety Report 8823540 (Version 2)
Quarter: 2012Q4

REPORT INFORMATION
  Report Type: 
  Country: CA (occurrence: CA)
  Receive Date: 20121003
  Receipt Date: 20121019
  Transmission Date: 20130627
  Serious: Yes (Hospitalization)
  Sender: FDA-Public Use
  Company Number: CA-B.I. PHARMACEUTICALS,INC./RIDGEFIELD-2012-CN-01994CN

PATIENT
  Age: 60 Year
  Sex: Male

DRUGS (1)
  1. PRADAX [Suspect]
     Indication: ATRIAL FIBRILLATION
     Dosage: 300 mg
     Dates: start: 2011

REACTIONS (2)
  - Transient ischaemic attack [Recovered/Resolved]
  - Vision blurred [Recovered/Resolved]
